FAERS Safety Report 4600112-3 (Version None)
Quarter: 2005Q1

REPORT INFORMATION
  Report Type: 
  Country: None (occurrence: None)
  Receive Date: 20050303
  Receipt Date: 20050223
  Transmission Date: 20050727
  Serious: Yes (Life-Threatening, Other)
  Sender: FDA-Public Use
  Company Number: 2004-10-1592

PATIENT
  Age: 46 Year
  Sex: Female
  Weight: 81 kg

DRUGS (1)
  1. DIPROSPAN (BETAMETHASONE SODIUM PHOSPHATE/DIPROPIONA INJECTABLE SUSPEN [Suspect]
     Indication: PAIN
     Dosage: INTRAMUSCULAR
     Route: 030
     Dates: start: 20041021, end: 20041021

REACTIONS (4)
  - DYSPNOEA [None]
  - ECCHYMOSIS [None]
  - LARYNGOSPASM [None]
  - RASH [None]
